FAERS Safety Report 20291360 (Version 1)
Quarter: 2022Q1

REPORT INFORMATION
  Report Type: Spontaneous
  Country: US (occurrence: US)
  Receive Date: 20220104
  Receipt Date: 20220104
  Transmission Date: 20220423
  Serious: Yes (Other)
  Sender: FDA-Public Use
  Company Number: US-NOVARTISPH-NVSC2021US297541

PATIENT
  Age: 71 Year
  Sex: Female

DRUGS (2)
  1. PAZOPANIB [Suspect]
     Active Substance: PAZOPANIB
     Indication: Metastatic renal cell carcinoma
     Dosage: 800 MG, QD
     Route: 065
     Dates: start: 201210
  2. PAZOPANIB [Suspect]
     Active Substance: PAZOPANIB
     Dosage: 400-800 MG, QD
     Route: 065
     Dates: start: 201301, end: 201611

REACTIONS (3)
  - Panniculitis [Recovered/Resolved]
  - Metastatic renal cell carcinoma [Unknown]
  - Malignant neoplasm progression [Unknown]

NARRATIVE: CASE EVENT DATE: 20180801
